FAERS Safety Report 10271484 (Version 3)
Quarter: 2014Q3

REPORT INFORMATION
  Report Type: Report from Study
  Country: RU (occurrence: RU)
  Receive Date: 20140701
  Receipt Date: 20140729
  Transmission Date: 20150326
  Serious: Yes (Death, Life-Threatening)
  Sender: FDA-Public Use
  Company Number: RU-ONYX-2014-1456

PATIENT
  Age: 74 Year
  Sex: Female
  Weight: 63 kg

DRUGS (16)
  1. CONCOR COR [Concomitant]
     Active Substance: BISOPROLOL FUMARATE
     Indication: ANGINA PECTORIS
  2. PREDNISONE. [Suspect]
     Active Substance: PREDNISONE
     Indication: PLASMA CELL MYELOMA
     Route: 048
     Dates: start: 20140620, end: 20140623
  3. VEROSPIRON [Concomitant]
     Active Substance: SPIRONOLACTONE
     Indication: ANGINA PECTORIS
  4. CONCOR COR [Concomitant]
     Active Substance: BISOPROLOL FUMARATE
     Indication: HYPERTENSION
  5. CALCHEK [Concomitant]
     Indication: ANGINA PECTORIS
  6. CARFILZOMIB [Suspect]
     Active Substance: CARFILZOMIB
     Route: 042
     Dates: start: 20140627, end: 20140628
  7. ARIFON RETARD [Concomitant]
     Indication: ANGINA PECTORIS
  8. CALCHEK [Concomitant]
     Indication: CORONARY ARTERY DISEASE
     Route: 048
     Dates: start: 201205
  9. VEROSPIRON [Concomitant]
     Active Substance: SPIRONOLACTONE
     Indication: HYPERTENSION
  10. ARIFON RETARD [Concomitant]
     Indication: CORONARY ARTERY DISEASE
     Route: 048
     Dates: start: 201205
  11. CARFILZOMIB [Suspect]
     Active Substance: CARFILZOMIB
     Indication: PLASMA CELL MYELOMA
     Route: 042
     Dates: start: 20140620, end: 20140621
  12. CONCOR COR [Concomitant]
     Active Substance: BISOPROLOL FUMARATE
     Indication: CORONARY ARTERY DISEASE
     Route: 048
     Dates: start: 201205
  13. ARIFON RETARD [Concomitant]
     Indication: HYPERTENSION
  14. CALCHEK [Concomitant]
     Indication: HYPERTENSION
  15. MELPHALAN [Suspect]
     Active Substance: MELPHALAN
     Indication: PLASMA CELL MYELOMA
     Route: 048
     Dates: start: 20140620, end: 20140623
  16. VEROSPIRON [Concomitant]
     Active Substance: SPIRONOLACTONE
     Indication: CORONARY ARTERY DISEASE
     Route: 048
     Dates: start: 201205

REACTIONS (1)
  - Pneumonia [Fatal]

NARRATIVE: CASE EVENT DATE: 20140629
